FAERS Safety Report 5600004-7 (Version None)
Quarter: 2007Q4

REPORT INFORMATION
  Report Type: 
  Country: None (occurrence: None)
  Receive Date: 20071226
  Receipt Date: 20070814
  Transmission Date: 20080405
  Serious: Yes (Life-Threatening, Hospitalization, Other)
  Sender: FDA-Public Use
  Company Number: 244865

PATIENT
  Age: 77 Year
  Sex: Male
  Weight: 79.4 kg

DRUGS (1)
  1. RAPTIVA [Suspect]
     Indication: PSORIASIS
     Dosage: 90MG, Q2W, SUBCUTANEOUS 125 MG, Q2W, SUBCUTANEOUS
     Route: 058
     Dates: start: 20040401

REACTIONS (1)
  - DIFFUSE LARGE B-CELL LYMPHOMA [None]
